FAERS Safety Report 21956564 (Version 1)
Quarter: 2023Q1

REPORT INFORMATION
  Report Type: Spontaneous
  Country: US (occurrence: US)
  Receive Date: 20230206
  Receipt Date: 20230206
  Transmission Date: 20230418
  Serious: No
  Sender: FDA-Public Use
  Company Number: US-BAYER-2023A011010

PATIENT
  Age: 43 Year
  Sex: Male

DRUGS (3)
  1. LOTRIMIN ULTRA ATHLETES FOOT [Suspect]
     Active Substance: BUTENAFINE HYDROCHLORIDE
     Indication: Tinea infection
     Dosage: 4 TIMES A DAY
     Route: 061
  2. LOTRIMIN ULTRA ATHLETES FOOT [Suspect]
     Active Substance: BUTENAFINE HYDROCHLORIDE
     Indication: Tinea infection
     Dosage: 2 TO 3 TIMES PER DAY
     Route: 061
  3. ECONAZOLE NITRATE [Suspect]
     Active Substance: ECONAZOLE NITRATE

REACTIONS (1)
  - Extra dose administered [Not Recovered/Not Resolved]

NARRATIVE: CASE EVENT DATE: 20221001
